FAERS Safety Report 7193937-4 (Version None)
Quarter: 2010Q4

REPORT INFORMATION
  Report Type: 
  Country: None (occurrence: None)
  Receive Date: 20101223
  Receipt Date: 20100913
  Transmission Date: 20110411
  Serious: No
  Sender: FDA-Public Use
  Company Number: US-AMGEN-KDL437810

PATIENT

DRUGS (19)
  1. ENBREL [Suspect]
     Indication: PRODUCT USED FOR UNKNOWN INDICATION
     Dosage: 50 MG, QWK
     Route: 058
  2. DEXTROPROPOXYPHENE NAPSILATE W/ ACETAMINOPHEN [Concomitant]
     Dosage: UNK UNK, UNK
  3. LUMIGAN [Concomitant]
     Dosage: .03 %, UNK
  4. BRIMONIDINE TARTRATE [Concomitant]
     Dosage: .1 %, UNK
  5. TRAMADOL HYDROCHLORIDE [Concomitant]
     Dosage: 50 MG, UNK
  6. METHOTREXATE [Concomitant]
     Dosage: 2.5 MG, UNK
  7. GABAPENTIN [Concomitant]
     Dosage: 100 MG, UNK
  8. CLINDAMYCIN [Concomitant]
     Dosage: 150 MG, UNK
  9. OMEPRAZOLE [Concomitant]
     Dosage: 10 MG, UNK
  10. FOLIC ACID [Concomitant]
     Dosage: 1 MG, UNK
  11. TIMOLOL MALEATE [Concomitant]
     Dosage: .25 %, UNK
  12. MULTI-VITAMINS [Concomitant]
     Dosage: UNK UNK, UNK
  13. CALCIUM [Concomitant]
     Dosage: 500 MG, UNK
  14. IRON [Concomitant]
     Dosage: 325 MG, UNK
  15. CYCLOBENZAPRINE HCL [Concomitant]
     Dosage: .5 MG, UNK
  16. ERGOCALCIFEROL [Concomitant]
     Dosage: 1000 IU, UNK
  17. MELOXICAM [Concomitant]
     Dosage: 15 MG, UNK
  18. CELEXA [Concomitant]
     Dosage: 10 MG, UNK
  19. ASCORBIC ACID [Concomitant]
     Dosage: 250 MG, UNK

REACTIONS (2)
  - DENTAL CARE [None]
  - RASH [None]
